FAERS Safety Report 25482668 (Version 1)
Quarter: 2025Q2

REPORT INFORMATION
  Report Type: Spontaneous
  Country: GB (occurrence: GB)
  Receive Date: 20250626
  Receipt Date: 20250626
  Transmission Date: 20250716
  Serious: Yes (Hospitalization, Disabling, Other)
  Sender: AUROBINDO
  Company Number: GB-MHRA-MED-202506121547004430-FJLPN

PATIENT
  Age: 36 Year
  Sex: Male
  Weight: 93 kg

DRUGS (2)
  1. PREGABALIN [Suspect]
     Active Substance: PREGABALIN
     Indication: Product used for unknown indication
     Route: 065
  2. ZUCLOPENTHIXOL [Concomitant]
     Active Substance: ZUCLOPENTHIXOL
     Indication: Psychotic disorder
     Route: 065

REACTIONS (1)
  - Priapism [Not Recovered/Not Resolved]

NARRATIVE: CASE EVENT DATE: 20250607
